FAERS Safety Report 19621196 (Version 1)
Quarter: 2021Q3

REPORT INFORMATION
  Report Type: Spontaneous
  Country: US (occurrence: US)
  Receive Date: 20210728
  Receipt Date: 20210728
  Transmission Date: 20211014
  Serious: Yes (Death)
  Sender: FDA-Public Use
  Company Number: None

PATIENT
  Age: 90 Year
  Sex: Male
  Weight: 69.4 kg

DRUGS (1)
  1. RIVAROXABAN [Suspect]
     Active Substance: RIVAROXABAN
     Indication: ATRIAL FIBRILLATION
     Route: 048
     Dates: start: 20170301, end: 20210402

REACTIONS (14)
  - Anaemia [None]
  - International normalised ratio increased [None]
  - Haemoglobin decreased [None]
  - Cardiopulmonary failure [None]
  - Renal mass [None]
  - Hypotension [None]
  - Gastrointestinal haemorrhage [None]
  - Dehydration [None]
  - Blood creatine increased [None]
  - Urinary tract infection [None]
  - Shock haemorrhagic [None]
  - Therapy interrupted [None]
  - Occult blood positive [None]
  - Escherichia bacteraemia [None]
